FAERS Safety Report 25768767 (Version 3)
Quarter: 2025Q4

REPORT INFORMATION
  Report Type: Spontaneous
  Country: KR (occurrence: None)
  Receive Date: 20250905
  Receipt Date: 20251119
  Transmission Date: 20260117
  Serious: Yes (Other)
  Sender: UCB
  Company Number: KR-UCBSA-2025054641

PATIENT
  Age: 42 Year

DRUGS (2)
  1. KEPPRA [Suspect]
     Active Substance: LEVETIRACETAM
     Indication: Epilepsy
     Dosage: 500 MILLIGRAM
  2. LEVETIRACETAM [Suspect]
     Active Substance: LEVETIRACETAM
     Indication: Epilepsy
     Dosage: 750 MILLIGRAM, 2X/DAY (BID)

REACTIONS (3)
  - Seizure [Recovered/Resolved]
  - Product residue present [Recovered/Resolved]
  - Off label use [Unknown]
